FAERS Safety Report 13367831 (Version 1)
Quarter: 2017Q1

REPORT INFORMATION
  Report Type: Spontaneous
  Country: JP (occurrence: JP)
  Receive Date: 20170324
  Receipt Date: 20170324
  Transmission Date: 20170429
  Serious: Yes (Other)
  Sender: FDA-Public Use
  Company Number: JP-AMGEN-JPNSP2017045182

PATIENT
  Age: 67 Year
  Sex: Male

DRUGS (5)
  1. LEUCOVORIN                         /00566702/ [Suspect]
     Active Substance: LEUCOVORIN
     Indication: COLON CANCER
     Dosage: 100 MG/M2, Q2WEEKS
     Route: 041
  2. 5-FU                               /00098801/ [Suspect]
     Active Substance: FLUOROURACIL
     Indication: COLON CANCER
     Dosage: 400 MG/M2, Q2WEEKS
     Route: 040
  3. 5-FU                               /00098801/ [Suspect]
     Active Substance: FLUOROURACIL
     Dosage: 600 MG/M2, Q2WEEKS
     Route: 041
  4. OXALIPLATIN. [Suspect]
     Active Substance: OXALIPLATIN
     Indication: COLON CANCER
     Dosage: 85 MG/M2, Q2WEEKS
     Route: 041
  5. VECTIBIX [Suspect]
     Active Substance: PANITUMUMAB
     Indication: COLON CANCER
     Dosage: 6 MG/KG, Q2WEEKS
     Route: 041

REACTIONS (1)
  - Neutropenia [Recovered/Resolved]
